FAERS Safety Report 26123528 (Version 3)
Quarter: 2025Q4

REPORT INFORMATION
  Report Type: Report from Study
  Country: EU (occurrence: EU)
  Receive Date: 20251204
  Receipt Date: 20251222
  Transmission Date: 20260118
  Serious: Yes (Hospitalization, Disabling)
  Sender: AMGEN
  Company Number: EU-AMGEN-BELNI2025240351

PATIENT
  Age: 30 Year
  Sex: Male

DRUGS (14)
  1. CYSTEAMINE BITARTRATE [Suspect]
     Active Substance: CYSTEAMINE BITARTRATE
     Indication: Cystinosis
     Dosage: 75 MILLIGRAM, BID
     Route: 048
     Dates: start: 20210401, end: 20210407
  2. CYSTEAMINE BITARTRATE [Suspect]
     Active Substance: CYSTEAMINE BITARTRATE
     Dosage: 113 MILLIGRAM, BID
     Route: 048
     Dates: start: 20210408, end: 20210414
  3. CYSTEAMINE BITARTRATE [Suspect]
     Active Substance: CYSTEAMINE BITARTRATE
     Dosage: 150 MILLIGRAM, BID
     Route: 048
     Dates: start: 20210415, end: 20210421
  4. CYSTEAMINE BITARTRATE [Suspect]
     Active Substance: CYSTEAMINE BITARTRATE
     Dosage: 188 MILLIGRAM, BID
     Route: 048
     Dates: start: 20210422, end: 20210428
  5. CYSTEAMINE BITARTRATE [Suspect]
     Active Substance: CYSTEAMINE BITARTRATE
     Dosage: 225 MILLIGRAM, BID
     Route: 048
     Dates: start: 20210429, end: 20210505
  6. CYSTEAMINE BITARTRATE [Suspect]
     Active Substance: CYSTEAMINE BITARTRATE
     Dosage: 263 MILLIGRAM, BID
     Route: 048
     Dates: start: 20210506, end: 20210521
  7. CYSTEAMINE BITARTRATE [Suspect]
     Active Substance: CYSTEAMINE BITARTRATE
     Dosage: 300 MILLIGRAM, BID
     Route: 048
     Dates: start: 20210513, end: 20210519
  8. CYSTEAMINE BITARTRATE [Suspect]
     Active Substance: CYSTEAMINE BITARTRATE
     Dosage: 338 MILLIGRAM, BID
     Route: 048
     Dates: start: 20210520, end: 20210526
  9. CYSTEAMINE BITARTRATE [Suspect]
     Active Substance: CYSTEAMINE BITARTRATE
     Dosage: 375 MILLIGRAM, BID
     Route: 048
     Dates: start: 20210527, end: 20210602
  10. CYSTEAMINE BITARTRATE [Suspect]
     Active Substance: CYSTEAMINE BITARTRATE
     Dosage: 413 MILLIGRAM, BID
     Route: 048
     Dates: start: 20210610, end: 20211005
  11. CYSTEAMINE BITARTRATE [Suspect]
     Active Substance: CYSTEAMINE BITARTRATE
     Dosage: 450 MILLIGRAM, BID
     Route: 048
     Dates: start: 20210610, end: 20211005
  12. CYSTEAMINE BITARTRATE [Suspect]
     Active Substance: CYSTEAMINE BITARTRATE
     Dosage: 600 MILLIGRAM, BID
     Route: 048
     Dates: start: 20211006, end: 20220118
  13. OMEPRAZOLE [Concomitant]
     Active Substance: OMEPRAZOLE
     Dosage: UNK
     Dates: start: 2014
  14. CYSTAGON [Concomitant]
     Active Substance: CYSTEAMINE BITARTRATE
     Indication: Cystinosis
     Dosage: UNK
     Dates: start: 20220119

REACTIONS (1)
  - Epilepsy [Recovered/Resolved]

NARRATIVE: CASE EVENT DATE: 20250715
